FAERS Safety Report 6007479-2 (Version None)
Quarter: 2008Q4

REPORT INFORMATION
  Report Type: 
  Country: None (occurrence: None)
  Receive Date: 20081217
  Receipt Date: 20080428
  Transmission Date: 20090506
  Serious: No
  Sender: FDA-Public Use
  Company Number: US-ASTRAZENECA-2008UW08517

PATIENT
  Age: 66 Year
  Sex: Female
  Weight: 78.8 kg

DRUGS (7)
  1. CRESTOR [Suspect]
     Indication: BLOOD CHOLESTEROL INCREASED
     Route: 048
     Dates: start: 20080401
  2. AMBIEN CR [Interacting]
  3. EFFEXOR [Concomitant]
  4. PREMARIN [Concomitant]
  5. LISINOPRIL [Concomitant]
  6. ATENOLOL [Concomitant]
  7. SYNTHROID [Concomitant]

REACTIONS (2)
  - INITIAL INSOMNIA [None]
  - NIGHTMARE [None]
